FAERS Safety Report 8808374 (Version 5)
Quarter: 2013Q4

REPORT INFORMATION
  Report Type: Spontaneous
  Country: US (occurrence: US)
  Receive Date: 20120926
  Receipt Date: 20131007
  Transmission Date: 20140711
  Serious: Yes (Death, Disabling)
  Sender: FDA-Public Use
  Company Number: US-BAYER-2012-097723

PATIENT
  Age: 35 Year
  Sex: Female

DRUGS (8)
  1. YASMIN [Suspect]
  2. CYCLOBENZAPRINE [Concomitant]
     Dosage: 10 MG, UNK
     Route: 048
     Dates: start: 20070417, end: 20070505
  3. ADVIL [IBUPROFEN] [Concomitant]
     Dosage: 600 MG, UNK
     Route: 048
     Dates: start: 20070417
  4. ADVIL [IBUPROFEN] [Concomitant]
  5. PROPOXYPHENE NAPSYLATE [Concomitant]
     Dosage: 100/650
     Route: 048
     Dates: start: 20070417
  6. DT ADULTE VACCINE [Concomitant]
     Indication: IMMUNISATION
     Dosage: 0.5 ML, UNK
     Route: 030
     Dates: start: 20070417
  7. XYLOCAINE [LIDOCAINE] [Concomitant]
     Indication: LOCAL ANAESTHESIA
     Dosage: UNK
     Dates: start: 20070417
  8. EPINEPHRINE [Concomitant]
     Indication: LOCAL ANAESTHESIA

REACTIONS (10)
  - Pulmonary embolism [Fatal]
  - Deep vein thrombosis [Fatal]
  - Deep vein thrombosis [Fatal]
  - Injury [None]
  - Emotional distress [None]
  - Pain [None]
  - Pain [None]
  - Anxiety [None]
  - Fear of disease [None]
  - Anhedonia [None]
